FAERS Safety Report 7949601-4 (Version None)
Quarter: 2011Q4

REPORT INFORMATION
  Report Type: 
  Country: None (occurrence: None)
  Receive Date: 20111130
  Receipt Date: 20111128
  Transmission Date: 20120403
  Serious: Yes (Hospitalization)
  Sender: FDA-Public Use
  Company Number: US-ELI_LILLY_AND_COMPANY-US201111008287

PATIENT
  Sex: Male

DRUGS (3)
  1. CRESTOR [Concomitant]
     Dosage: UNK, UNKNOWN
  2. EFFIENT [Suspect]
     Indication: ANTICOAGULANT THERAPY
     Dosage: UNK, UNKNOWN
     Dates: start: 20080101
  3. COREG [Concomitant]
     Dosage: UNK, UNKNOWN

REACTIONS (1)
  - VASCULAR GRAFT [None]
